FAERS Safety Report 10677827 (Version 2)
Quarter: 2015Q2

REPORT INFORMATION
  Report Type: Spontaneous
  Country: US (occurrence: None)
  Receive Date: 20141223
  Receipt Date: 20150415
  Transmission Date: 20150821
  Serious: Yes (Hospitalization, Other)
  Sender: FDA-Public Use
  Company Number: 201412119

PATIENT
  Age: 57 Year
  Sex: Male
  Weight: 131.54 kg

DRUGS (11)
  1. OXYCODONE [Concomitant]
     Active Substance: OXYCODONE
  2. ASPIRIN (ACETYLSALICYLIC ACID) [Concomitant]
     Active Substance: ASPIRIN
  3. CLOPIDOGREL BISULFATE. [Concomitant]
     Active Substance: CLOPIDOGREL BISULFATE
  4. LISINOPRIL. [Concomitant]
     Active Substance: LISINOPRIL
  5. FAMOTIDINE. [Concomitant]
     Active Substance: FAMOTIDINE
  6. INSULIN [Concomitant]
     Active Substance: INSULIN NOS
  7. TESTIM [Suspect]
     Active Substance: TESTOSTERONE
     Indication: BLOOD TESTOSTERONE DECREASED
     Route: 062
     Dates: start: 20140115, end: 20140212
  8. ATORVASTATIN [Concomitant]
     Active Substance: ATORVASTATIN
  9. LEVOTHYROXINE [Concomitant]
     Active Substance: LEVOTHYROXINE
  10. GEMFIBROZIL. [Concomitant]
     Active Substance: GEMFIBROZIL
  11. OXYCONTIN [Concomitant]
     Active Substance: OXYCODONE HYDROCHLORIDE

REACTIONS (9)
  - Confusional state [None]
  - Anxiety [None]
  - Fatigue [None]
  - Pain [None]
  - Family stress [None]
  - Asthenia [None]
  - Overdose [None]
  - Transient ischaemic attack [None]
  - Cerebrovascular accident [None]

NARRATIVE: CASE EVENT DATE: 20140211
